FAERS Safety Report 11024706 (Version 1)
Quarter: 2015Q2

REPORT INFORMATION
  Report Type: Spontaneous
  Country: US (occurrence: None)
  Receive Date: 20150413
  Receipt Date: 20150413
  Transmission Date: 20150821
  Serious: Yes (Hospitalization, Other)
  Sender: FDA-Public Use
  Company Number: None

PATIENT
  Age: 62 Year
  Sex: Female
  Weight: 73.94 kg

DRUGS (2)
  1. DALMANE [Suspect]
     Active Substance: FLURAZEPAM HYDROCHLORIDE
     Indication: INSOMNIA
     Dosage: 1 CAPSULE EVERY OTHER NIGHT
     Route: 048
  2. LEVOTHYROXINE [Concomitant]
     Active Substance: LEVOTHYROXINE

REACTIONS (7)
  - Insomnia [None]
  - Tremor [None]
  - Coordination abnormal [None]
  - Urticaria [None]
  - Hepatic enzyme increased [None]
  - Toxicity to various agents [None]
  - Withdrawal syndrome [None]

NARRATIVE: CASE EVENT DATE: 20150228
